FAERS Safety Report 13968031 (Version 2)
Quarter: 2017Q4

REPORT INFORMATION
  Report Type: Spontaneous
  Country: US (occurrence: US)
  Receive Date: 20170914
  Receipt Date: 20171004
  Transmission Date: 20180320
  Serious: Yes (Hospitalization, Other)
  Sender: FDA-Public Use
  Company Number: US-009507513-1709USA006122

PATIENT
  Sex: Female

DRUGS (2)
  1. NOXAFIL [Suspect]
     Active Substance: POSACONAZOLE
     Indication: PULMONARY MASS
     Dosage: UNK
     Route: 048
     Dates: start: 201705, end: 2017
  2. NOXAFIL [Suspect]
     Active Substance: POSACONAZOLE
     Dosage: UNK (SPLITTING HER TABLETS IN HALF)
     Route: 048
     Dates: start: 2017, end: 2017

REACTIONS (6)
  - Wrong technique in product usage process [Unknown]
  - Incorrect dose administered [Unknown]
  - Pericardial effusion [Unknown]
  - Hepatosplenic candidiasis [Unknown]
  - Product use in unapproved indication [Unknown]
  - Drug level increased [Unknown]

NARRATIVE: CASE EVENT DATE: 2017
